FAERS Safety Report 9850584 (Version 1)
Quarter: 2013Q4

REPORT INFORMATION
  Report Type: Spontaneous
  Country: US (occurrence: None)
  Receive Date: 20131226
  Receipt Date: 20131226
  Transmission Date: 20140711
  Serious: Yes (Hospitalization)
  Sender: FDA-Public Use
  Company Number: PHEH2013US005805

PATIENT
  Age: 89 Year
  Sex: Male
  Weight: 71.2 kg

DRUGS (1)
  1. DIOVAN (VALSARTAN) [Suspect]
     Indication: HYPERTENSION
     Dosage: UNK UKN, UNK

REACTIONS (3)
  - Blood pressure increased [None]
  - Gait disturbance [None]
  - Dizziness [None]
